FAERS Safety Report 6930907-2 (Version None)
Quarter: 2010Q3

REPORT INFORMATION
  Report Type: 
  Country: None (occurrence: None)
  Receive Date: 20100813
  Receipt Date: 20100512
  Transmission Date: 20110219
  Serious: Yes (Other)
  Sender: FDA-Public Use
  Company Number: 2010AP001001

PATIENT
  Age: 20 Year
  Sex: Male

DRUGS (5)
  1. RISPERIDONE [Suspect]
     Indication: AGITATION
     Dosage: 0.5 MG;BID, PO
     Route: 048
     Dates: start: 20080201, end: 20100319
  2. LUSTRAL (SERTRALINE HYDROCHLORIDE) /IRE/ [Suspect]
     Indication: ANXIETY
     Dosage: 200 MG;PO;QD, 100 MG;QD
     Route: 048
     Dates: end: 20100219
  3. LUSTRAL (SERTRALINE HYDROCHLORIDE) /IRE/ [Suspect]
     Indication: DEPRESSION
     Dosage: 200 MG;PO;QD, 100 MG;QD
     Route: 048
     Dates: end: 20100219
  4. LUSTRAL (SERTRALINE HYDROCHLORIDE) /IRE/ [Suspect]
     Indication: ANXIETY
     Dosage: 200 MG;PO;QD, 100 MG;QD
     Route: 048
     Dates: start: 20080101
  5. LUSTRAL (SERTRALINE HYDROCHLORIDE) /IRE/ [Suspect]
     Indication: DEPRESSION
     Dosage: 200 MG;PO;QD, 100 MG;QD
     Route: 048
     Dates: start: 20080101

REACTIONS (2)
  - DRUG INTERACTION [None]
  - THROMBOCYTOPENIA [None]
